FAERS Safety Report 8115766-7 (Version None)
Quarter: 2012Q1

REPORT INFORMATION
  Report Type: 
  Country: None (occurrence: None)
  Receive Date: 20120206
  Receipt Date: 20120123
  Transmission Date: 20120608
  Serious: Yes (Life-Threatening, Hospitalization, Other)
  Sender: FDA-Public Use
  Company Number: BR-ROCHE-587154

PATIENT
  Sex: Male
  Weight: 115 kg

DRUGS (7)
  1. SERTRALINE HYDROCHLORIDE [Concomitant]
     Indication: DEPRESSION
     Dosage: OTHER INDICATION: ANXIETY AND STRESS
     Route: 048
     Dates: start: 20080201, end: 20080801
  2. VENLIFT [Concomitant]
     Indication: WITHDRAWAL SYNDROME
     Route: 048
  3. CLONAZEPAM [Suspect]
     Indication: LABYRINTHITIS
     Dosage: OTHER INDICATION: SLEEPING AND STRESS, AT NIGHT,EMOTIONAL LABYRINTHITIS
     Route: 048
     Dates: start: 20080211, end: 20080801
  4. CLONAZEPAM [Suspect]
     Indication: STRESS
     Dosage: STRENGTH: 0.5MG, 1 TAB PER DAY
     Route: 048
  5. CLONAZEPAM [Suspect]
     Indication: ANXIETY
     Dosage: STRENGTH: 0.5 MG, 2 TAB/DAY
     Route: 048
     Dates: start: 20081128, end: 20081228
  6. CLONAZEPAM [Suspect]
     Route: 048
  7. ANSITEC [Concomitant]
     Route: 048

REACTIONS (71)
  - AGITATION [None]
  - HYPERTENSION [None]
  - MEDICATION ERROR [None]
  - SENSORY LOSS [None]
  - CHEST PAIN [None]
  - HALLUCINATION [None]
  - UNEVALUABLE EVENT [None]
  - FATIGUE [None]
  - HYPERAESTHESIA [None]
  - INSOMNIA [None]
  - SOCIAL PROBLEM [None]
  - CRYING [None]
  - FIBROMYALGIA [None]
  - FEELING COLD [None]
  - COLD SWEAT [None]
  - LABILE BLOOD PRESSURE [None]
  - PSYCHOMOTOR SKILLS IMPAIRED [None]
  - WEIGHT INCREASED [None]
  - MOBILITY DECREASED [None]
  - NERVOUS SYSTEM DISORDER [None]
  - EAR INFECTION [None]
  - PHOTOSENSITIVITY REACTION [None]
  - CONFUSIONAL STATE [None]
  - IRRITABILITY [None]
  - TACHYCARDIA [None]
  - FEELING DRUNK [None]
  - ADVERSE EVENT [None]
  - HYPOAESTHESIA [None]
  - PYREXIA [None]
  - CHILLS [None]
  - DIZZINESS [None]
  - DEPERSONALISATION [None]
  - ARTHRALGIA [None]
  - MYDRIASIS [None]
  - BLOOD CHOLESTEROL INCREASED [None]
  - APPARENT DEATH [None]
  - DETOXIFICATION [None]
  - SENSORY DISTURBANCE [None]
  - SLEEP DISORDER [None]
  - DYSPHORIA [None]
  - MYALGIA [None]
  - COORDINATION ABNORMAL [None]
  - SENSATION OF PRESSURE [None]
  - PAIN [None]
  - OVERWEIGHT [None]
  - HEAD DISCOMFORT [None]
  - VERTIGO [None]
  - DYSPNOEA [None]
  - SENSATION OF HEAVINESS [None]
  - BLOOD PRESSURE FLUCTUATION [None]
  - HEADACHE [None]
  - NERVOUSNESS [None]
  - APATHY [None]
  - ILL-DEFINED DISORDER [None]
  - HYPOTONIA [None]
  - BONE PAIN [None]
  - BURNING SENSATION [None]
  - PANIC REACTION [None]
  - POISONING [None]
  - DECREASED ACTIVITY [None]
  - DISORIENTATION [None]
  - TREMOR [None]
  - SOMNOLENCE [None]
  - EMOTIONAL DISORDER [None]
  - HEART RATE DECREASED [None]
  - WITHDRAWAL SYNDROME [None]
  - MALAISE [None]
  - PARAESTHESIA [None]
  - EAR PAIN [None]
  - NEUROMYOPATHY [None]
  - MUSCLE DISORDER [None]
